FAERS Safety Report 7943905-7 (Version None)
Quarter: 2011Q4

REPORT INFORMATION
  Report Type: 
  Country: None (occurrence: None)
  Receive Date: 20111128
  Receipt Date: 20111118
  Transmission Date: 20120403
  Serious: Yes (Other)
  Sender: FDA-Public Use
  Company Number: US-ASTRAZENECA-2011SE70607

PATIENT
  Sex: Male

DRUGS (1)
  1. BRILINTA [Suspect]
     Route: 048
     Dates: start: 20111117

REACTIONS (4)
  - NAUSEA [None]
  - HYPERTENSION [None]
  - ANAPHYLACTIC SHOCK [None]
  - CHEST PAIN [None]
